FAERS Safety Report 7025691-0 (Version None)
Quarter: 2010Q4

REPORT INFORMATION
  Report Type: 
  Country: None (occurrence: None)
  Receive Date: 20101004
  Receipt Date: 20100929
  Transmission Date: 20110411
  Serious: Yes (Hospitalization)
  Sender: FDA-Public Use
  Company Number: US-BIOGENIDEC-2010BI024889

PATIENT
  Age: 63 Year
  Sex: Female

DRUGS (8)
  1. TYSABRI [Suspect]
     Indication: CROHN'S DISEASE
     Route: 042
     Dates: start: 20040720, end: 20050201
  2. TYSABRI [Suspect]
     Route: 042
     Dates: start: 20100622
  3. CITALOPRAM HYDROBROMIDE [Concomitant]
  4. CYANOCOBALAMIN [Concomitant]
  5. FUROSEMIDE [Concomitant]
  6. KLOR-CON [Concomitant]
  7. MAGNESIUM [Concomitant]
  8. ONDANSETRON [Concomitant]

REACTIONS (4)
  - ABDOMINAL PAIN UPPER [None]
  - CONDITION AGGRAVATED [None]
  - CROHN'S DISEASE [None]
  - RENAL CELL CARCINOMA [None]
